FAERS Safety Report 4350852-9 (Version None)
Quarter: 2004Q2

REPORT INFORMATION
  Report Type: 
  Country: None (occurrence: None)
  Receive Date: 20040427
  Receipt Date: 20040414
  Transmission Date: 20050107
  Serious: No
  Sender: FDA-Public Use
  Company Number: A01200401784

PATIENT
  Age: 62 Year
  Sex: Male

DRUGS (3)
  1. PLAVIX [Suspect]
     Dosage: 75 MG OD
     Route: 048
     Dates: start: 20020101
  2. TAREG (VALSARTAN) [Concomitant]
  3. FONZYLANE (BUFLOMEDIL HYDROCHLORIDE) [Concomitant]

REACTIONS (1)
  - PHLEBITIS [None]
